FAERS Safety Report 19013941 (Version 2)
Quarter: 2021Q2

REPORT INFORMATION
  Report Type: Spontaneous
  Country: JP (occurrence: JP)
  Receive Date: 20210316
  Receipt Date: 20210401
  Transmission Date: 20210717
  Serious: Yes (Hospitalization, Disabling)
  Sender: FDA-Public Use
  Company Number: JP-BAYER-2021-071750

PATIENT
  Age: 67 Year
  Sex: Male
  Weight: 69 kg

DRUGS (8)
  1. LOXOPROFEN NA [Concomitant]
     Active Substance: LOXOPROFEN SODIUM
     Dosage: DAILY DOSE 180 MG
     Route: 048
  2. XOFIGO [Suspect]
     Active Substance: RADIUM RA-223 DICHLORIDE
     Indication: METASTASES TO BONE
  3. XOFIGO [Suspect]
     Active Substance: RADIUM RA-223 DICHLORIDE
     Indication: HORMONE-REFRACTORY PROSTATE CANCER
     Dosage: 55 KBQ/KG, ONCE
     Dates: start: 20210121, end: 20210121
  4. METFORMIN HYDROCHLORIDE. [Concomitant]
     Active Substance: METFORMIN HYDROCHLORIDE
     Dosage: DAILY DOSE 500 MG
     Route: 048
  5. ACETAMINOPHEN. [Concomitant]
     Active Substance: ACETAMINOPHEN
     Dosage: DAILY DOSE 2000 MG
     Route: 048
  6. TRAMAL [Concomitant]
     Active Substance: TRAMADOL
     Dosage: DAILY DOSE 100 MG
     Route: 048
  7. ESOMEPRAZOLE. [Concomitant]
     Active Substance: ESOMEPRAZOLE MAGNESIUM
     Dosage: DAILY DOSE 20 MG
     Route: 048
  8. XTANDI [Concomitant]
     Active Substance: ENZALUTAMIDE
     Dosage: DAILY DOSE 160 MG
     Route: 048
     Dates: start: 20201222

REACTIONS (7)
  - Bladder disorder [Not Recovered/Not Resolved]
  - Pain [Not Recovered/Not Resolved]
  - Anorectal disorder [Not Recovered/Not Resolved]
  - Hypoaesthesia [Not Recovered/Not Resolved]
  - Spinal compression fracture [Not Recovered/Not Resolved]
  - Monoplegia [Not Recovered/Not Resolved]
  - Gait disturbance [Not Recovered/Not Resolved]

NARRATIVE: CASE EVENT DATE: 20210216
